FAERS Safety Report 4861768-3 (Version None)
Quarter: 2005Q4

REPORT INFORMATION
  Report Type: 
  Country: None (occurrence: None)
  Receive Date: 20051130
  Receipt Date: 20041103
  Transmission Date: 20060501
  Serious: Yes (Other)
  Sender: FDA-Public Use
  Company Number: 2004090320

PATIENT

DRUGS (1)
  1. LINEZOLID SOLUTION, STERILE (LINEZOLID) [Suspect]
     Indication: STAPHYLOCOCCAL INFECTION
     Dosage: INTRAVENOUS
     Route: 042

REACTIONS (1)
  - LACTIC ACIDOSIS [None]
